FAERS Safety Report 9893271 (Version 15)
Quarter: 2017Q2

REPORT INFORMATION
  Report Type: Spontaneous
  Country: CA (occurrence: CA)
  Receive Date: 20140213
  Receipt Date: 20170421
  Transmission Date: 20170830
  Serious: Yes (Other)
  Sender: FDA-Public Use
  Company Number: CA-ROCHE-1281492

PATIENT
  Age: 35 Year
  Sex: Female

DRUGS (7)
  1. ZENHALE [Concomitant]
     Active Substance: FORMOTEROL FUMARATE\MOMETASONE FUROATE
     Indication: PRODUCT USED FOR UNKNOWN INDICATION
     Dosage: 6 TO 8 INHALATIONS FOR 3 DAYS
     Route: 055
  2. SINGULAIR [Concomitant]
     Active Substance: MONTELUKAST SODIUM
     Indication: PRODUCT USED FOR UNKNOWN INDICATION
     Dosage: QHS
     Route: 065
  3. XOLAIR [Suspect]
     Active Substance: OMALIZUMAB
     Route: 058
     Dates: start: 20170329
  4. XOLAIR [Suspect]
     Active Substance: OMALIZUMAB
     Indication: ASTHMA
     Route: 058
     Dates: start: 20130603
  5. XOLAIR [Suspect]
     Active Substance: OMALIZUMAB
     Route: 058
     Dates: start: 20170303
  6. XOLAIR [Suspect]
     Active Substance: OMALIZUMAB
     Route: 058
     Dates: start: 20160902
  7. XOLAIR [Suspect]
     Active Substance: OMALIZUMAB
     Indication: NASOPHARYNGITIS
     Route: 058
     Dates: start: 20160817

REACTIONS (17)
  - Back pain [Unknown]
  - Viral upper respiratory tract infection [Recovering/Resolving]
  - Dysphonia [Unknown]
  - Pruritus [Unknown]
  - Erythema [Unknown]
  - Abdominal pain [Unknown]
  - Insomnia [Unknown]
  - Dyspnoea [Unknown]
  - Abdominal pain upper [Unknown]
  - Pyrexia [Unknown]
  - Lung infection [Unknown]
  - Feeling abnormal [Unknown]
  - Cough [Unknown]
  - Asthma [Recovered/Resolved]
  - Sinusitis [Unknown]
  - Pharyngitis [Recovering/Resolving]
  - Malaise [Unknown]

NARRATIVE: CASE EVENT DATE: 20130603
